FAERS Safety Report 16154035 (Version 2)
Quarter: 2019Q3

REPORT INFORMATION
  Report Type: Report from Study
  Country: ZA (occurrence: ZA)
  Receive Date: 20190403
  Receipt Date: 20190731
  Transmission Date: 20191004
  Serious: Yes (Hospitalization)
  Sender: FDA-Public Use
  Company Number: ZA-SA-2019SA054090

PATIENT
  Age: 40 Year
  Sex: Male

DRUGS (13)
  1. ZARTAN (LOSARTAN POTASSIUM) [Concomitant]
     Active Substance: LOSARTAN POTASSIUM
     Dosage: UNK UNK, UNK
     Dates: start: 20190314
  2. LYRICA [Concomitant]
     Active Substance: PREGABALIN
     Dosage: UNK UNK, UNK
     Dates: start: 20190314
  3. ECOTRIN [Concomitant]
     Active Substance: ASPIRIN
     Dosage: UNK UNK, UNK
     Dates: start: 20190314
  4. OPTISULIN (INSULIN GLARGINE) [Suspect]
     Active Substance: INSULIN GLARGINE
     Dosage: 20 U BB, 16 IU BT, BID (BEFORE BREAKFAST, BED TIME)
     Dates: start: 20190213
  5. ZOXADON [Concomitant]
     Active Substance: RISPERIDONE
     Dosage: UNK UNK, UNK
     Dates: start: 20190314
  6. ASPAVOR [Concomitant]
     Active Substance: ATORVASTATIN
     Dosage: UNK UNK, UNK
     Dates: start: 20190314
  7. ADCO DAPAMAX [Concomitant]
     Active Substance: INDAPAMIDE
     Dosage: UNK UNK, UNK
     Dates: start: 20190314
  8. NO STUDY DRUG GIVEN [Suspect]
     Active Substance: INVESTIGATIONAL PRODUCT
     Dosage: UNK
  9. ADCO-ATENOLOL [Concomitant]
     Active Substance: ATENOLOL
     Dosage: UNK UNK, UNK
     Dates: start: 20190314
  10. APIDRA [Concomitant]
     Active Substance: INSULIN GLULISINE
     Dosage: 10 U, TID (BEFORE BREAKFAST, BEFORE LUNCH AND BEFORE SUPPER)
     Dates: start: 20190222
  11. AMLOC [AMLODIPINE BESILATE] [Concomitant]
     Active Substance: AMLODIPINE BESYLATE
     Dosage: UNK UNK, UNK
     Dates: start: 20190314
  12. HYPERPHEN [Concomitant]
     Active Substance: HYDRALAZINE HYDROCHLORIDE
     Dosage: UNK UNK, UNK
     Dates: start: 20190314
  13. ISMO [Concomitant]
     Active Substance: ISOSORBIDE MONONITRATE
     Dosage: UNK UNK, UNK
     Dates: start: 20190314

REACTIONS (4)
  - Off label use [Unknown]
  - Peripheral swelling [Not Recovered/Not Resolved]
  - Hypertension [Not Recovered/Not Resolved]
  - Glycosylated haemoglobin increased [Unknown]

NARRATIVE: CASE EVENT DATE: 20190327
